FAERS Safety Report 17439026 (Version 15)
Quarter: 2020Q4

REPORT INFORMATION
  Report Type: Other
  Country: DE (occurrence: DE)
  Receive Date: 20200220
  Receipt Date: 20201204
  Transmission Date: 20210113
  Serious: Yes (Hospitalization, Other)
  Sender: FDA-Public Use
  Company Number: DE-ROCHE-2339982

PATIENT
  Age: 63 Year
  Sex: Male
  Weight: 106 kg

DRUGS (16)
  1. INTERFERON [Concomitant]
     Active Substance: INTERFERON
  2. PREGABALIN. [Concomitant]
     Active Substance: PREGABALIN
     Route: 048
     Dates: start: 20200212, end: 20200218
  3. PREGABALIN. [Concomitant]
     Active Substance: PREGABALIN
     Route: 048
     Dates: start: 20200219
  4. PRIVIGEN [Concomitant]
     Active Substance: HUMAN IMMUNOGLOBULIN G
     Route: 042
     Dates: start: 20200206, end: 20200207
  5. COBIMETINIB. [Suspect]
     Active Substance: COBIMETINIB
     Route: 048
     Dates: start: 20190530, end: 20190617
  6. COBIMETINIB. [Suspect]
     Active Substance: COBIMETINIB
     Route: 048
     Dates: start: 20190530, end: 20190610
  7. VEMURAFENIB. [Suspect]
     Active Substance: VEMURAFENIB
     Indication: MALIGNANT MELANOMA
     Route: 048
     Dates: start: 20190530, end: 20190610
  8. PREGABALIN. [Concomitant]
     Active Substance: PREGABALIN
     Route: 048
     Dates: start: 20200211, end: 20200211
  9. PANTOPRAZOLE [Concomitant]
     Active Substance: PANTOPRAZOLE
     Route: 042
     Dates: start: 20200210, end: 20200215
  10. PANTOPRAZOLE [Concomitant]
     Active Substance: PANTOPRAZOLE
     Route: 048
     Dates: start: 20200217
  11. COBIMETINIB. [Suspect]
     Active Substance: COBIMETINIB
     Indication: MALIGNANT MELANOMA
     Route: 048
     Dates: start: 20190530, end: 20190610
  12. PANTOPRAZOLE [Concomitant]
     Active Substance: PANTOPRAZOLE
     Dosage: STOMACH DUE TO DECORTIN THERAPY
     Route: 048
     Dates: start: 20190611, end: 20190625
  13. CLEXANE [Concomitant]
     Active Substance: ENOXAPARIN SODIUM
     Route: 058
     Dates: start: 20200206, end: 20200227
  14. COBIMETINIB. [Suspect]
     Active Substance: COBIMETINIB
     Route: 048
     Dates: start: 20190617, end: 20200127
  15. VEMURAFENIB. [Suspect]
     Active Substance: VEMURAFENIB
     Route: 048
     Dates: start: 20190617, end: 20200126
  16. VEMURAFENIB. [Suspect]
     Active Substance: VEMURAFENIB
     Route: 048
     Dates: start: 20200127, end: 20200127

REACTIONS (39)
  - Sunburn [Recovered/Resolved]
  - Rash [Recovered/Resolved]
  - Facial paresis [Recovered/Resolved]
  - Muscular weakness [Not Recovered/Not Resolved]
  - Dyspnoea [Recovered/Resolved]
  - Oedema peripheral [Not Recovered/Not Resolved]
  - Arthralgia [Recovered/Resolved]
  - Back pain [Not Recovered/Not Resolved]
  - Pain in extremity [Recovered/Resolved]
  - Hand dermatitis [Recovered/Resolved]
  - Erythema [Recovered/Resolved]
  - Dry skin [Recovered/Resolved]
  - Ventricular extrasystoles [Not Recovered/Not Resolved]
  - Paraesthesia [Not Recovered/Not Resolved]
  - Dysphagia [Recovered/Resolved]
  - Hypertension [Recovered/Resolved]
  - Angiopathic neuropathy [Not Recovered/Not Resolved]
  - Eye oedema [Recovered/Resolved]
  - Face oedema [Recovered/Resolved]
  - Polyneuropathy [Unknown]
  - Dry eye [Recovered/Resolved]
  - Decreased appetite [Recovered/Resolved]
  - Diarrhoea [Recovered/Resolved]
  - Hyperkeratosis [Not Recovered/Not Resolved]
  - Myalgia [Not Recovered/Not Resolved]
  - Taste disorder [Recovered/Resolved]
  - Vision blurred [Not Recovered/Not Resolved]
  - Vitamin D deficiency [Not Recovered/Not Resolved]
  - Hypoaesthesia oral [Recovered/Resolved]
  - Neuropathy peripheral [Unknown]
  - Oedema peripheral [Not Recovered/Not Resolved]
  - Swelling of eyelid [Not Recovered/Not Resolved]
  - Calcium deficiency [Not Recovered/Not Resolved]
  - Dysaesthesia [Not Recovered/Not Resolved]
  - Dermatitis acneiform [Recovered/Resolved]
  - Blood creatinine increased [Not Recovered/Not Resolved]
  - Cough [Recovered/Resolved]
  - Constipation [Recovered/Resolved]
  - Dysarthria [Recovered/Resolved]

NARRATIVE: CASE EVENT DATE: 20190603
